FAERS Safety Report 14836796 (Version 1)
Quarter: 2020Q3

REPORT INFORMATION
  Report Type: Spontaneous
  Country: DE (occurrence: DE)
  Receive Date: 20180502
  Receipt Date: 20180502
  Transmission Date: 20201104
  Serious: Yes (Hospitalization)
  Sender: FDA-Public Use
  Company Number: IND-DE-009507513-1804DEU010347

PATIENT
  Age: 74 Year
  Sex: Male

DRUGS (4)
  1. PHENPROCOUMON [Suspect]
     Active Substance: PHENPROCOUMON
     Dosage: 3 MG, 0.5?0?0?0
  2. OMEPRAZOLE. [Concomitant]
     Active Substance: OMEPRAZOLE
     Dosage: 40 MG, 1?0?0?0
  3. ETORICOXIB. [Suspect]
     Active Substance: ETORICOXIB
     Dosage: 60 MG, 1?0?1?0; MEDICATION ERROR
  4. VERAPAMIL [Concomitant]
     Active Substance: VERAPAMIL HYDROCHLORIDE
     Dosage: 120 MG, 1?0?1?0

REACTIONS (6)
  - Skin haemorrhage [Unknown]
  - Dermatitis bullous [Unknown]
  - Spontaneous haemorrhage [Unknown]
  - Contraindicated product administered [Unknown]
  - Product prescribing error [Unknown]
  - Medication error [Unknown]
